FAERS Safety Report 12092578 (Version 1)
Quarter: 2016Q1

REPORT INFORMATION
  Report Type: Spontaneous
  Country: GB (occurrence: GB)
  Receive Date: 20160219
  Receipt Date: 20160219
  Transmission Date: 20160526
  Serious: Yes (Other)
  Sender: FDA-Public Use
  Company Number: GB-ACCORD-037805

PATIENT

DRUGS (3)
  1. CAPECITABINE. [Suspect]
     Active Substance: CAPECITABINE
     Indication: BREAST CANCER
     Route: 065
     Dates: start: 201405
  2. PACLITAXEL/PACLITAXEL LIPOSOME [Concomitant]
     Indication: PRODUCT USED FOR UNKNOWN INDICATION
     Route: 065
     Dates: start: 201511
  3. LETROZOLE. [Suspect]
     Active Substance: LETROZOLE
     Indication: BREAST CANCER
     Route: 065
     Dates: start: 201410

REACTIONS (4)
  - Breast cancer [Unknown]
  - Malignant neoplasm progression [Unknown]
  - Metastases to liver [Unknown]
  - Metastases to lymph nodes [Unknown]

NARRATIVE: CASE EVENT DATE: 201510
